FAERS Safety Report 4639802-5 (Version None)
Quarter: 2005Q2

REPORT INFORMATION
  Report Type: 
  Country: None (occurrence: None)
  Receive Date: 20050415
  Receipt Date: 20050330
  Transmission Date: 20051028
  Serious: Yes (Hospitalization)
  Sender: FDA-Public Use
  Company Number: WAES 0312USA00070

PATIENT
  Age: 64 Year
  Sex: Female

DRUGS (13)
  1. FOSAMAX [Suspect]
     Indication: OSTEOPOROSIS
     Dosage: 5 MG/DAILY
     Route: 048
     Dates: start: 20030904, end: 20040805
  2. TAB PLACEBO (UNSPECIFIED) [Suspect]
     Indication: OSTEOPOROSIS
     Dosage: 1 TABLET/DAILY
     Route: 048
     Dates: start: 20030904, end: 20040805
  3. CRAVIT [Concomitant]
  4. MIKELAN [Concomitant]
  5. NOFLO [Concomitant]
  6. PIVALEPHRINE [Concomitant]
  7. TARIVID [Concomitant]
  8. [THERAPY UNSPECIFIED] [Concomitant]
  9. ANALGESIC OR ANESTHETIC [UNSPECIFIED] [Concomitant]
  10. CALCIUM LACTATE [Concomitant]
  11. FLUOROMETHOLONE [Concomitant]
  12. GLUTATHIONE [Concomitant]
  13. HYALURONATE SODIUM [Concomitant]

REACTIONS (9)
  - ACCIDENT [None]
  - ARTHRALGIA [None]
  - BLOOD CREATINE PHOSPHOKINASE INCREASED [None]
  - CONJUNCTIVAL HAEMORRHAGE [None]
  - CONTUSION [None]
  - DEPRESSED LEVEL OF CONSCIOUSNESS [None]
  - MACULAR HOLE [None]
  - MYOPIA [None]
  - RETINAL DETACHMENT [None]
